FAERS Safety Report 14656533 (Version 7)
Quarter: 2018Q3

REPORT INFORMATION
  Report Type: Spontaneous
  Country: DE (occurrence: DE)
  Receive Date: 20180319
  Receipt Date: 20180816
  Transmission Date: 20181010
  Serious: Yes (Hospitalization, Disabling, Other)
  Sender: FDA-Public Use
  Company Number: DE-PFIZER INC-2018111506

PATIENT
  Age: 76 Year
  Sex: Female

DRUGS (2)
  1. MABTHERA [Suspect]
     Active Substance: RITUXIMAB
     Indication: RHEUMATOID ARTHRITIS
     Dosage: 1000 MG, UNK
     Route: 042
     Dates: end: 20160830
  2. METHOTREXATE SODIUM. [Suspect]
     Active Substance: METHOTREXATE SODIUM
     Indication: RHEUMATOID ARTHRITIS
     Dosage: 10 MG, 1X/DAY

REACTIONS (9)
  - Pulmonary embolism [Unknown]
  - Nasopharyngitis [Unknown]
  - Respiratory failure [Unknown]
  - Osteoporosis [Unknown]
  - Pulmonary arterial hypertension [Unknown]
  - Gastroenteritis clostridial [Recovered/Resolved]
  - Episcleritis [Unknown]
  - Keratitis [Recovered/Resolved]
  - Pulmonary fibrosis [Not Recovered/Not Resolved]

NARRATIVE: CASE EVENT DATE: 20161130
